FAERS Safety Report 19157810 (Version 1)
Quarter: 2021Q2

REPORT INFORMATION
  Report Type: Spontaneous
  Country: IT (occurrence: IT)
  Receive Date: 20210420
  Receipt Date: 20210420
  Transmission Date: 20210717
  Serious: Yes (Other)
  Sender: FDA-Public Use
  Company Number: IT-DRREDDYS-GER/ITL/21/0134360

PATIENT
  Age: 92 Year
  Sex: Male

DRUGS (3)
  1. CLOPIDOGREL [Suspect]
     Active Substance: CLOPIDOGREL BISULFATE
     Indication: ANTICOAGULANT THERAPY
     Route: 048
  2. IRBESARTAN/IDROCLOROTIAZIDE [Concomitant]
     Active Substance: HYDROCHLOROTHIAZIDE\IRBESARTAN
     Indication: HYPERTENSION
     Route: 048
  3. ACARBOSE. [Concomitant]
     Active Substance: ACARBOSE
     Indication: PRODUCT USED FOR UNKNOWN INDICATION
     Route: 048

REACTIONS (3)
  - Thrombosis [Recovered/Resolved]
  - Epistaxis [Recovered/Resolved]
  - Blood pressure abnormal [Recovered/Resolved]

NARRATIVE: CASE EVENT DATE: 20210322
